FAERS Safety Report 4284491-5 (Version None)
Quarter: 2004Q1

REPORT INFORMATION
  Report Type: 
  Country: None (occurrence: None)
  Receive Date: 20040130
  Receipt Date: 20040113
  Transmission Date: 20041129
  Serious: Yes (Hospitalization, Other)
  Sender: FDA-Public Use
  Company Number: US_001152922

PATIENT
  Age: 75 Year
  Sex: Female
  Weight: 107 kg

DRUGS (5)
  1. HUMALOG [Suspect]
     Indication: DIABETES MELLITUS
     Dosage: 40 U/2 DAY
     Dates: start: 19990101
  2. HUMULIN 70/30 [Suspect]
     Indication: DIABETES MELLITUS
     Dosage: 65 U/DAY
     Dates: start: 19940101, end: 19990101
  3. HUMULIN R [Suspect]
     Indication: DRUG USE FOR UNKNOWN INDICATION
     Dosage: 5 U/AS NEEDED
     Dates: start: 19940101, end: 19990101
  4. INSULIN [Suspect]
     Indication: DIABETES MELLITUS
     Dosage: UNK
     Route: 065
     Dates: start: 19740101, end: 19940101
  5. HUMALOG [Suspect]
     Indication: DIABETES MELLITUS
     Dosage: UNK
     Route: 065

REACTIONS (8)
  - BLOOD GLUCOSE INCREASED [None]
  - BONE NEOPLASM MALIGNANT [None]
  - BREAST CANCER [None]
  - CARDIAC FAILURE CONGESTIVE [None]
  - HYPOAESTHESIA [None]
  - INFECTION [None]
  - STRESS SYMPTOMS [None]
  - VISUAL ACUITY REDUCED [None]
